FAERS Safety Report 16171050 (Version 2)
Quarter: 2019Q2

REPORT INFORMATION
  Report Type: Report from Study
  Country: US (occurrence: US)
  Receive Date: 20190408
  Receipt Date: 20190503
  Transmission Date: 20190711
  Serious: Yes (Hospitalization)
  Sender: FDA-Public Use
  Company Number: US-ACTELION-A-NJ2019-188668

PATIENT
  Sex: Female

DRUGS (1)
  1. TRACLEER [Suspect]
     Active Substance: BOSENTAN
     Indication: PRODUCT USED FOR UNKNOWN INDICATION
     Dosage: 62.5 MG
     Route: 048

REACTIONS (6)
  - Pneumonia [Unknown]
  - Respiratory failure [Unknown]
  - Renal dysplasia [Unknown]
  - Pulmonary hypertension [Unknown]
  - Pyrexia [Unknown]
  - Septic shock [Unknown]
